FAERS Safety Report 14161085 (Version 1)
Quarter: 2017Q4

REPORT INFORMATION
  Report Type: Spontaneous
  Country: CM (occurrence: CM)
  Receive Date: 20171106
  Receipt Date: 20171106
  Transmission Date: 20180321
  Serious: Yes (Other)
  Sender: FDA-Public Use
  Company Number: CM-009507513-1711CMR001066

PATIENT
  Age: 42 Year
  Sex: Male
  Weight: 59 kg

DRUGS (3)
  1. REVITAL CAPSULES [Concomitant]
     Indication: ASTHENIA
     Dosage: CAPSULE, 1 ORAL CAPSULE/ DAY
     Route: 048
     Dates: start: 20171011
  2. EFAVIRENZ (+) LAMIVUDINE (+) TENOFOVIR DISOPROXIL FUMARATE [Concomitant]
     Indication: ANTIRETROVIRAL THERAPY
     Dosage: TABLET, 1 ORAL TABLET/ DAY
     Route: 048
     Dates: start: 20170228
  3. SINGULAIR [Suspect]
     Active Substance: MONTELUKAST SODIUM
     Indication: ASTHMA
     Dosage: 10 MG, QD (10 MG ORAL ROUTE 1 TABLET A DAY)
     Route: 048
     Dates: start: 20171012

REACTIONS (1)
  - Facial paralysis [Not Recovered/Not Resolved]

NARRATIVE: CASE EVENT DATE: 20171019
